FAERS Safety Report 5688359-9 (Version None)
Quarter: 2008Q1

REPORT INFORMATION
  Report Type: 
  Country: None (occurrence: None)
  Receive Date: 20080328
  Receipt Date: 20080328
  Transmission Date: 20080703
  Serious: Yes (Other)
  Sender: FDA-Public Use
  Company Number: None

PATIENT
  Age: 2 Year
  Sex: Male
  Weight: 14.5151 kg

DRUGS (1)
  1. SINGULAIR [Suspect]
     Indication: ASTHMA
     Dosage: 1 PACK ONCE DAILY PO
     Route: 048
     Dates: start: 20061120, end: 20061122

REACTIONS (11)
  - ABNORMAL BEHAVIOUR [None]
  - CONVERSION DISORDER [None]
  - CRYING [None]
  - FATIGUE [None]
  - FEAR [None]
  - GAIT DISTURBANCE [None]
  - HALLUCINATION [None]
  - SCREAMING [None]
  - VISUAL DISTURBANCE [None]
  - VOMITING [None]
  - VOMITING PROJECTILE [None]
